FAERS Safety Report 5269656-8 (Version None)
Quarter: 2007Q1

REPORT INFORMATION
  Report Type: 
  Country: None (occurrence: None)
  Receive Date: 20070320
  Receipt Date: 20070307
  Transmission Date: 20070707
  Serious: Yes (Hospitalization)
  Sender: FDA-Public Use
  Company Number: JP-PFIZER INC-2006114350

PATIENT
  Sex: Male
  Weight: 57.4 kg

DRUGS (6)
  1. GENOTROPIN [Suspect]
     Indication: HYPOPITUITARISM
     Route: 058
     Dates: start: 20030911, end: 20061004
  2. GROWJECT [Suspect]
     Indication: HYPOPITUITARISM
     Dosage: DAILY DOSE:1MG
     Route: 058
     Dates: start: 20010426, end: 20010929
  3. DESMOPRESSIN [Concomitant]
     Indication: HYPOPITUITARISM
     Route: 045
  4. CORTRIL [Concomitant]
     Indication: HYPOPITUITARISM
     Route: 048
     Dates: start: 20011029
  5. THYRADIN S [Concomitant]
     Indication: HYPOPITUITARISM
     Route: 048
     Dates: start: 20011029
  6. TESTOSTERONE ENANTHATE [Concomitant]
     Indication: HYPOPITUITARISM
     Route: 030
     Dates: start: 20050217

REACTIONS (2)
  - GERM CELL CANCER [None]
  - NEOPLASM RECURRENCE [None]
